FAERS Safety Report 10461349 (Version 1)
Quarter: 2014Q3

REPORT INFORMATION
  Report Type: Spontaneous
  Country: DE (occurrence: None)
  Receive Date: 20140916
  Receipt Date: 20140916
  Transmission Date: 20150326
  Serious: Yes (Hospitalization)
  Sender: FDA-Public Use
  Company Number: DE-17044

PATIENT
  Age: 81 Year
  Sex: Female

DRUGS (1)
  1. PICOPREP [Suspect]
     Active Substance: CITRIC ACID MONOHYDRATE\MAGNESIUM OXIDE\SODIUM PICOSULFATE
     Indication: BOWEL PREPARATION

REACTIONS (4)
  - Hyponatraemia [None]
  - Cerebrovascular accident [None]
  - Delirium [None]
  - Loss of consciousness [None]

NARRATIVE: CASE EVENT DATE: 20140605
